FAERS Safety Report 9129009 (Version 1)
Quarter: 2013Q1

REPORT INFORMATION
  Report Type: Report from Study
  Country: US (occurrence: US)
  Receive Date: 20130228
  Receipt Date: 20130228
  Transmission Date: 20140127
  Serious: No
  Sender: FDA-Public Use
  Company Number: US-ABBOTT-13P-163-1038338-00

PATIENT
  Age: 64 None
  Sex: Male

DRUGS (3)
  1. ANDROGEL [Suspect]
     Indication: BLOOD TESTOSTERONE DECREASED
     Dosage: 2 PUMPS DAILY
     Dates: start: 20121025
  2. ANDROGEL [Suspect]
     Dosage: 6 PUMPS DAILY
     Dates: start: 201212
  3. ANDROGEL [Suspect]
     Dosage: 4 PUMPS DAILY
     Dates: start: 20130117

REACTIONS (2)
  - Incorrect drug dosage form administered [Unknown]
  - Blood testosterone decreased [Unknown]
